FAERS Safety Report 21194461 (Version 1)
Quarter: 2022Q3

REPORT INFORMATION
  Report Type: Spontaneous
  Country: US (occurrence: None)
  Receive Date: 20220809
  Receipt Date: 20220809
  Transmission Date: 20221027
  Serious: Yes (Other)
  Sender: FDA-Public Use
  Company Number: None

PATIENT
  Age: 26 Year
  Sex: Female
  Weight: 56.25 kg

DRUGS (4)
  1. MAGNESIUM CITRATE ORAL CHERRY FLAVOR [Suspect]
     Active Substance: MAGNESIUM CITRATE
     Indication: Constipation
     Dates: start: 20220716, end: 20220717
  2. LYRICA [Concomitant]
     Active Substance: PREGABALIN
  3. TIZANIDINE [Concomitant]
     Active Substance: TIZANIDINE
  4. LINZESS [Concomitant]
     Active Substance: LINACLOTIDE

REACTIONS (5)
  - Recalled product administered [None]
  - Abdominal distension [None]
  - Flatulence [None]
  - Constipation [None]
  - Paradoxical drug reaction [None]

NARRATIVE: CASE EVENT DATE: 20220720
